FAERS Safety Report 5657829-1 (Version None)
Quarter: 2008Q1

REPORT INFORMATION
  Report Type: 
  Country: None (occurrence: None)
  Receive Date: 20080305
  Receipt Date: 20080222
  Transmission Date: 20080703
  Serious: Yes (Other)
  Sender: FDA-Public Use
  Company Number: OMPQ-NO-0802S-0118

PATIENT
  Age: 69 Year
  Sex: Male

DRUGS (1)
  1. OMNIPAQUE 140 [Suspect]
     Indication: DRUG USE FOR UNKNOWN INDICATION
     Dosage: 80 ML; SINGLE DOSE, I.A.
     Dates: start: 20080121, end: 20080121

REACTIONS (2)
  - DERMATITIS [None]
  - VIRAL SKIN INFECTION [None]
